FAERS Safety Report 8033310-X (Version None)
Quarter: 2012Q1

REPORT INFORMATION
  Report Type: 
  Country: None (occurrence: None)
  Receive Date: 20120110
  Receipt Date: 20120103
  Transmission Date: 20120608
  Serious: Yes (Other)
  Sender: FDA-Public Use
  Company Number: US-JNJFOC-20111002718

PATIENT
  Sex: Female
  Weight: 54.43 kg

DRUGS (2)
  1. REMICADE [Suspect]
     Indication: RHEUMATOID ARTHRITIS
     Route: 042
     Dates: start: 20110801, end: 20110801
  2. REMICADE [Suspect]
     Route: 042
     Dates: start: 20110301

REACTIONS (5)
  - INFUSION RELATED REACTION [None]
  - PAIN IN EXTREMITY [None]
  - BURNING SENSATION [None]
  - SKIN DISCOLOURATION [None]
  - HYPERHIDROSIS [None]
